FAERS Safety Report 25969534 (Version 1)
Quarter: 2025Q4

REPORT INFORMATION
  Report Type: Spontaneous
  Country: US (occurrence: US)
  Receive Date: 20251028
  Receipt Date: 20251028
  Transmission Date: 20260118
  Serious: No
  Sender: VERTEX
  Company Number: US-VERTEX PHARMACEUTICALS-2025-017595

PATIENT

DRUGS (2)
  1. JOURNAVX [Suspect]
     Active Substance: SUZETRIGINE
     Indication: Neuropathy peripheral
     Dosage: UNK
     Route: 048
     Dates: start: 202503, end: 2025
  2. JOURNAVX [Suspect]
     Active Substance: SUZETRIGINE
     Dosage: 2 -3 PILLS PER WEEK
     Route: 048
     Dates: start: 2025

REACTIONS (3)
  - Hypoaesthesia [Not Recovered/Not Resolved]
  - Paraesthesia [Not Recovered/Not Resolved]
  - Off label use [Unknown]

NARRATIVE: CASE EVENT DATE: 20250101
